FAERS Safety Report 15448685 (Version 2)
Quarter: 2021Q4

REPORT INFORMATION
  Report Type: Spontaneous
  Country: US (occurrence: US)
  Receive Date: 20180929
  Receipt Date: 20211225
  Transmission Date: 20220303
  Serious: No
  Sender: FDA-Public Use
  Company Number: US-SA-2018SA270179

PATIENT
  Age: 26 Year
  Sex: Male

DRUGS (1)
  1. CEREZYME [Suspect]
     Active Substance: IMIGLUCERASE
     Dosage: 2400 UNIS QOW
     Route: 041
     Dates: start: 20180924

REACTIONS (1)
  - Product dose omission issue [Unknown]
